FAERS Safety Report 12265107 (Version 1)
Quarter: 2016Q2

REPORT INFORMATION
  Report Type: Spontaneous
  Country: CN (occurrence: CN)
  Receive Date: 20160413
  Receipt Date: 20160413
  Transmission Date: 20160815
  Serious: Yes (Other)
  Sender: FDA-Public Use
  Company Number: CN-GLAXOSMITHKLINE-CN2016GSK049872

PATIENT
  Sex: Female

DRUGS (2)
  1. CEFUROXIME. [Suspect]
     Active Substance: CEFUROXIME
     Indication: ESCHERICHIA INFECTION
  2. AZTREONAM. [Concomitant]
     Active Substance: AZTREONAM
     Indication: ESCHERICHIA INFECTION

REACTIONS (1)
  - Pathogen resistance [Unknown]
